FAERS Safety Report 12443398 (Version 11)
Quarter: 2025Q2

REPORT INFORMATION
  Report Type: Spontaneous
  Country: US (occurrence: US)
  Receive Date: 20160607
  Receipt Date: 20250408
  Transmission Date: 20250717
  Serious: Yes (Hospitalization, Other)
  Sender: PFIZER
  Company Number: US-PFIZER INC-2016288408

PATIENT
  Age: 82 Year
  Sex: Female
  Weight: 73 kg

DRUGS (2)
  1. PREMARIN [Suspect]
     Active Substance: ESTROGENS, CONJUGATED
     Indication: Hormone replacement therapy
     Dosage: 0.625 MG, 1X/DAY
     Route: 048
     Dates: start: 1977
  2. PREMARIN [Suspect]
     Active Substance: ESTROGENS, CONJUGATED
     Indication: Nervousness

REACTIONS (11)
  - Depression [Recovered/Resolved]
  - Crying [Unknown]
  - Product dose omission issue [Unknown]
  - Hypertension [Recovered/Resolved]
  - Heart rate increased [Unknown]
  - Lipids abnormal [Unknown]
  - Malaise [Unknown]
  - Asthenia [Unknown]
  - Headache [Unknown]
  - Blood pressure abnormal [Unknown]
  - Illness [Unknown]

NARRATIVE: CASE EVENT DATE: 20160524
